FAERS Safety Report 25063666 (Version 3)
Quarter: 2025Q2

REPORT INFORMATION
  Report Type: Spontaneous
  Country: JP (occurrence: JP)
  Receive Date: 20250311
  Receipt Date: 20250526
  Transmission Date: 20250717
  Serious: Yes (Hospitalization)
  Sender: ALEXION PHARMACEUTICALS
  Company Number: JP-ASTRAZENECA-250021735_063010_P_1

PATIENT
  Age: 72 Year
  Weight: 53 kg

DRUGS (6)
  1. DAPAGLIFLOZIN [Suspect]
     Active Substance: DAPAGLIFLOZIN
     Indication: Type 2 diabetes mellitus
  2. ROSUVASTATIN [Concomitant]
     Active Substance: ROSUVASTATIN
     Indication: Dyslipidaemia
     Dosage: 2.5 MILLIGRAM, QD
  3. METHYLCOBALAMIN [Concomitant]
     Active Substance: METHYLCOBALAMIN
     Indication: Intervertebral disc protrusion
     Dosage: 500 MICROGRAM, TID
  4. AZILSARTAN KAMEDOXOMIL [Concomitant]
     Active Substance: AZILSARTAN KAMEDOXOMIL
     Indication: Hypertension
     Dosage: 10 MILLIGRAM, QD
  5. LIMAPROST [Concomitant]
     Active Substance: LIMAPROST
     Indication: Intervertebral disc protrusion
     Dosage: 5 MICROGRAM, TID
  6. MIROGABALIN BESYLATE [Concomitant]
     Active Substance: MIROGABALIN BESYLATE
     Indication: Intervertebral disc protrusion
     Dosage: 5 MILLIGRAM, QD

REACTIONS (1)
  - Euglycaemic diabetic ketoacidosis [Recovered/Resolved]
